FAERS Safety Report 5748206-3 (Version None)
Quarter: 2008Q2

REPORT INFORMATION
  Report Type: 
  Country: None (occurrence: None)
  Receive Date: 20080520
  Receipt Date: 20080507
  Transmission Date: 20081010
  Serious: Yes (Hospitalization)
  Sender: FDA-Public Use
  Company Number: 2008BI011959

PATIENT
  Age: 56 Year
  Sex: Female
  Weight: 40.8237 kg

DRUGS (2)
  1. AVONEX [Suspect]
     Indication: MULTIPLE SCLEROSIS
     Dosage: 30 UG;QW;IM
     Route: 030
     Dates: start: 20071201
  2. DURAGESIC-50 [Concomitant]

REACTIONS (7)
  - CONSTIPATION [None]
  - GASTROINTESTINAL ULCER [None]
  - INFLUENZA LIKE ILLNESS [None]
  - LIVER DISORDER [None]
  - NASOPHARYNGITIS [None]
  - OESOPHAGEAL ULCER [None]
  - PANCREATIC DISORDER [None]
